FAERS Safety Report 15660999 (Version 1)
Quarter: 2018Q4

REPORT INFORMATION
  Report Type: Spontaneous
  Country: JP (occurrence: JP)
  Receive Date: 20181127
  Receipt Date: 20181127
  Transmission Date: 20190205
  Serious: Yes (Hospitalization)
  Sender: FDA-Public Use
  Company Number: JP-ANIPHARMA-2018-JP-000218

PATIENT
  Age: 77 Year
  Sex: Male
  Weight: 65 kg

DRUGS (7)
  1. BICALUTAMIDE. [Suspect]
     Active Substance: BICALUTAMIDE
     Indication: PROSTATE CANCER
     Dosage: 80 MG QD
     Route: 048
     Dates: start: 20170609
  2. FEBURIC [Suspect]
     Active Substance: FEBUXOSTAT
     Dosage: 10 MG QD
     Route: 048
  3. NEXIUM [Suspect]
     Active Substance: ESOMEPRAZOLE MAGNESIUM
     Dosage: 20 MG QD
     Route: 048
  4. ERBITUX [Suspect]
     Active Substance: CETUXIMAB
     Dosage: 200 MG WEEK / 400 MG WEEK
     Route: 042
     Dates: start: 20180605
  5. ATORVASTATIN [Suspect]
     Active Substance: ATORVASTATIN
     Dosage: 10 MG QD
     Route: 048
  6. TOPOTECIN [Suspect]
     Active Substance: IRINOTECAN HYDROCHLORIDE
     Dosage: 200 MG UNK / 180 MG UNK / 130 MG UNK / 100 MG UNK
     Route: 065
     Dates: start: 20180605
  7. 5-FU [Suspect]
     Active Substance: FLUOROURACIL
     Dosage: 3000 MG Q2WK
     Route: 042
     Dates: start: 20180605

REACTIONS (6)
  - Dizziness [Unknown]
  - Nausea [Unknown]
  - Fatigue [Unknown]
  - Atrioventricular block complete [Recovering/Resolving]
  - Brain natriuretic peptide increased [Unknown]
  - Chest pain [Unknown]

NARRATIVE: CASE EVENT DATE: 20180930
